FAERS Safety Report 25278856 (Version 1)
Quarter: 2025Q2

REPORT INFORMATION
  Report Type: Spontaneous
  Country: IN (occurrence: IN)
  Receive Date: 20250507
  Receipt Date: 20250507
  Transmission Date: 20250716
  Serious: Yes (Death, Other)
  Sender: PFIZER
  Company Number: IN-PFIZER INC-PV202400130386

PATIENT
  Age: 43 Year
  Sex: Female
  Weight: 79.1 kg

DRUGS (4)
  1. LORLATINIB [Suspect]
     Active Substance: LORLATINIB
     Indication: Lung cancer metastatic
     Dosage: 100 MG, 1X/DAY
     Route: 048
     Dates: start: 20240108
  2. BIO D3 DS [Concomitant]
  3. LEVETIRACETAM [Concomitant]
     Active Substance: LEVETIRACETAM
  4. ROZAVEL F [Concomitant]

REACTIONS (3)
  - Death [Fatal]
  - Pneumonia [Unknown]
  - Blood pressure increased [Unknown]

NARRATIVE: CASE EVENT DATE: 20250423
